FAERS Safety Report 13853063 (Version 2)
Quarter: 2017Q3

REPORT INFORMATION
  Report Type: Spontaneous
  Country: FR (occurrence: FR)
  Receive Date: 20170810
  Receipt Date: 20170919
  Transmission Date: 20171127
  Serious: Yes (Hospitalization)
  Sender: FDA-Public Use
  Company Number: FR-ACCORD-057045

PATIENT
  Age: 67 Year
  Sex: Male
  Weight: 61 kg

DRUGS (9)
  1. EMEND [Concomitant]
     Active Substance: APREPITANT
     Indication: ANTIEMETIC SUPPORTIVE CARE
     Route: 048
  2. AVASTIN [Suspect]
     Active Substance: BEVACIZUMAB
     Indication: COLON CANCER STAGE 0
     Route: 042
     Dates: start: 20170711
  3. FLUOROURACIL ACCORD [Suspect]
     Active Substance: FLUOROURACIL
     Indication: COLON CANCER STAGE 0
     Route: 042
     Dates: start: 20170711
  4. IRINOTECAN HOSPIRA [Suspect]
     Active Substance: IRINOTECAN
     Indication: COLON CANCER STAGE 0
     Route: 042
     Dates: start: 20170711
  5. METHYLPREDNISOLONE MYLAN [Concomitant]
     Active Substance: METHYLPREDNISOLONE
     Route: 042
     Dates: start: 20170711
  6. ATROPINE SULFATE AGUETTANT [Concomitant]
     Active Substance: ATROPINE SULFATE
     Route: 058
     Dates: start: 20170711
  7. FOLINIC ACID ZENTIVA [Concomitant]
     Route: 042
  8. OXALIPLATIN HOSPIRA [Suspect]
     Active Substance: OXALIPLATIN
     Indication: COLON CANCER STAGE 0
     Route: 042
     Dates: start: 20170711
  9. NEULASTA [Concomitant]
     Active Substance: PEGFILGRASTIM
     Route: 042
     Dates: start: 20170713

REACTIONS (1)
  - Myocardial infarction [Recovered/Resolved with Sequelae]

NARRATIVE: CASE EVENT DATE: 20170713
